FAERS Safety Report 11889265 (Version 16)
Quarter: 2017Q2

REPORT INFORMATION
  Report Type: Report from Study
  Country: US (occurrence: US)
  Receive Date: 20160105
  Receipt Date: 20170609
  Transmission Date: 20170829
  Serious: Yes (Hospitalization)
  Sender: FDA-Public Use
  Company Number: US-B.I. PHARMACEUTICALS,INC./RIDGEFIELD-2015-BI-64672BP

PATIENT
  Age: 74 Year
  Sex: Female

DRUGS (4)
  1. OFEV [Suspect]
     Active Substance: NINTEDANIB
     Route: 048
  2. OFEV [Suspect]
     Active Substance: NINTEDANIB
     Route: 048
  3. NORCO [Suspect]
     Active Substance: ACETAMINOPHEN\HYDROCODONE BITARTRATE
     Indication: PAIN
     Route: 065
  4. OFEV [Suspect]
     Active Substance: NINTEDANIB
     Indication: IDIOPATHIC PULMONARY FIBROSIS
     Route: 048
     Dates: start: 20150928

REACTIONS (32)
  - Constipation [Unknown]
  - Weight decreased [Unknown]
  - Oedema peripheral [Unknown]
  - Lip infection [Unknown]
  - Dyspnoea [Unknown]
  - Lung neoplasm malignant [Unknown]
  - Joint injury [Unknown]
  - Arthritis [Unknown]
  - Urinary tract infection [Unknown]
  - Hypotension [Unknown]
  - Fall [Unknown]
  - Eye infection [Unknown]
  - Nodule [Unknown]
  - Gastrooesophageal reflux disease [Unknown]
  - Hiatus hernia [Unknown]
  - Nausea [Unknown]
  - Gastrooesophageal reflux disease [Unknown]
  - Staphylococcal infection [Unknown]
  - Abdominal pain upper [Unknown]
  - Hernia [Unknown]
  - Gastroenteritis viral [Unknown]
  - Productive cough [Unknown]
  - Gastrointestinal disorder [Unknown]
  - Pain [Unknown]
  - Swelling [Unknown]
  - Peripheral swelling [Unknown]
  - Pain in extremity [Unknown]
  - Localised infection [Unknown]
  - Hernia [Unknown]
  - Cystitis [Unknown]
  - Skin infection [Unknown]
  - Diarrhoea [Unknown]

NARRATIVE: CASE EVENT DATE: 20151117
